FAERS Safety Report 9658074 (Version 1)
Quarter: 2013Q4

REPORT INFORMATION
  Report Type: Spontaneous
  Country: US (occurrence: US)
  Receive Date: 20131030
  Receipt Date: 20131030
  Transmission Date: 20140711
  Serious: Yes (Other)
  Sender: FDA-Public Use
  Company Number: ALCN2013US005450

PATIENT
  Age: 80 Year
  Sex: Female

DRUGS (1)
  1. SYSTANE [Suspect]
     Dosage: UNK
     Dates: start: 20131020, end: 20131026

REACTIONS (1)
  - Blood pressure increased [Not Recovered/Not Resolved]
